FAERS Safety Report 9127715 (Version 1)
Quarter: 2013Q1

REPORT INFORMATION
  Report Type: Spontaneous
  Country: US (occurrence: US)
  Receive Date: 20130228
  Receipt Date: 20130228
  Transmission Date: 20140127
  Serious: Yes (Other)
  Sender: FDA-Public Use
  Company Number: US-GLAXOSMITHKLINE-A0995131A

PATIENT
  Sex: Female

DRUGS (2)
  1. LAMOTRIGINE [Suspect]
     Indication: BIPOLAR DISORDER
     Route: 048
     Dates: start: 20120911, end: 20120924
  2. TEGRETOL [Concomitant]

REACTIONS (5)
  - Rash [Not Recovered/Not Resolved]
  - Stomatitis [Unknown]
  - Blister [Unknown]
  - Skin lesion [Unknown]
  - Swollen tongue [Unknown]
